FAERS Safety Report 23441471 (Version 1)
Quarter: 2024Q1

REPORT INFORMATION
  Report Type: Spontaneous
  Country: RU (occurrence: RU)
  Receive Date: 20240125
  Receipt Date: 20240125
  Transmission Date: 20240410
  Serious: Yes (Hospitalization, Other)
  Sender: FDA-Public Use
  Company Number: RU-EPICPHARMA-RU-2024EPCLIT00167

PATIENT
  Age: 8 Month
  Sex: Male

DRUGS (10)
  1. MIDAZOLAM HYDROCHLORIDE [Suspect]
     Active Substance: MIDAZOLAM HYDROCHLORIDE
     Indication: Anaesthesia
     Dosage: 0.32 MG/KG
     Route: 030
  2. DIPHENHYDRAMINE [Suspect]
     Active Substance: DIPHENHYDRAMINE
     Indication: Anaesthesia
     Dosage: 0.1 MG/KG
     Route: 030
  3. KETAMINE [Suspect]
     Active Substance: KETAMINE
     Indication: Anaesthesia
     Dosage: 1 MG/KG
     Route: 030
  4. SEVOFLURANE [Suspect]
     Active Substance: SEVOFLURANE
     Indication: Anaesthesia
     Dosage: MIXTURE IN OXYGEN OVER 3MIN THROUGH A MASK
     Route: 007
  5. SEVOFLURANE [Suspect]
     Active Substance: SEVOFLURANE
     Dosage: MIXTURE IN OXYGEN OVER 3MIN THROUGH A MASK
     Route: 007
  6. ROCURONIUM BROMIDE [Suspect]
     Active Substance: ROCURONIUM BROMIDE
     Indication: Neuromuscular blockade
     Route: 065
  7. FENTANYL [Suspect]
     Active Substance: FENTANYL\FENTANYL CITRATE
     Indication: Perioperative analgesia
     Dosage: 3.1 MICROGRAM/KG
     Route: 065
  8. ATROPINE [Concomitant]
     Active Substance: ATROPINE\ATROPINE SULFATE
     Indication: Product used for unknown indication
     Route: 065
  9. EPINEPHRINE [Concomitant]
     Active Substance: EPINEPHRINE
     Indication: Product used for unknown indication
     Route: 065
  10. ACETAMINOPHEN [Concomitant]
     Active Substance: ACETAMINOPHEN
     Indication: Analgesic therapy
     Route: 065

REACTIONS (1)
  - Sinus node dysfunction [Recovering/Resolving]
